FAERS Safety Report 4944705-2 (Version None)
Quarter: 2006Q1

REPORT INFORMATION
  Report Type: 
  Country: None (occurrence: None)
  Receive Date: 20060315
  Receipt Date: 20060131
  Transmission Date: 20060701
  Serious: Yes (Hospitalization)
  Sender: FDA-Public Use
  Company Number: BR-ABBOTT-06P-020-0323774-00

PATIENT
  Age: 45 Year
  Sex: Male

DRUGS (6)
  1. HUMIRA [Suspect]
     Indication: RHEUMATOID ARTHRITIS
     Dosage: 1 INJECTION EACH 14 DAYS
     Route: 058
     Dates: start: 20050701, end: 20060126
  2. HUMIRA [Suspect]
     Route: 058
     Dates: start: 20060201
  3. DEFLAZACORT [Suspect]
     Indication: RHEUMATOID ARTHRITIS
  4. DEFLAZACORT [Suspect]
  5. NSAID'S [Concomitant]
     Indication: RHEUMATOID ARTHRITIS
  6. NSAID'S [Concomitant]

REACTIONS (4)
  - ASTHENIA [None]
  - BLOOD PRESSURE FLUCTUATION [None]
  - DYSPNOEA [None]
  - HYPERTENSION [None]
